FAERS Safety Report 8106959-3 (Version None)
Quarter: 2011Q4

REPORT INFORMATION
  Report Type: 
  Country: None (occurrence: None)
  Receive Date: 20111223
  Receipt Date: 20101111
  Transmission Date: 20120403
  Serious: Yes (Hospitalization)
  Sender: FDA-Public Use
  Company Number: RENA-1000910

PATIENT
  Age: 64 Year
  Sex: Female

DRUGS (2)
  1. RENAGEL [Suspect]
     Indication: HYPERPHOSPHATAEMIA
     Dosage: ORAL ; 1.6 G, TID, ORAL
     Route: 048
     Dates: start: 20100909
  2. RENVELA [Suspect]
     Indication: HYPERPHOSPHATAEMIA
     Dosage: 4 G, TID, ORAL
     Route: 048

REACTIONS (1)
  - SMALL INTESTINAL OBSTRUCTION [None]
